FAERS Safety Report 7505982-7 (Version None)
Quarter: 2011Q2

REPORT INFORMATION
  Report Type: 
  Country: None (occurrence: None)
  Receive Date: 20110526
  Receipt Date: 20110516
  Transmission Date: 20111010
  Serious: Yes (Other)
  Sender: FDA-Public Use
  Company Number: PHHY2011MX42790

PATIENT
  Age: 85 Year
  Sex: Male

DRUGS (1)
  1. EXFORGE [Suspect]
     Indication: HYPERTENSION
     Dosage: 1 DF, 160 MG VALS AND 10 MG AMLO
     Dates: start: 20110201

REACTIONS (5)
  - FACE INJURY [None]
  - EPISTAXIS [None]
  - NASAL INFLAMMATION [None]
  - FALL [None]
  - HEAD INJURY [None]
